FAERS Safety Report 25284183 (Version 1)
Quarter: 2025Q2

REPORT INFORMATION
  Report Type: Spontaneous
  Country: US (occurrence: US)
  Receive Date: 20250508
  Receipt Date: 20250508
  Transmission Date: 20250717
  Serious: No
  Sender: MERCK SHARP & DOHME LLC
  Company Number: US-009507513-2283242

PATIENT
  Sex: Male
  Weight: 88.9 kg

DRUGS (18)
  1. SOTATERCEPT [Suspect]
     Active Substance: SOTATERCEPT
     Indication: Product used for unknown indication
     Route: 065
  2. SOTATERCEPT [Suspect]
     Active Substance: SOTATERCEPT
  3. SOTATERCEPT [Suspect]
     Active Substance: SOTATERCEPT
  4. SOTATERCEPT [Suspect]
     Active Substance: SOTATERCEPT
  5. REMODULIN [Suspect]
     Active Substance: TREPROSTINIL
     Indication: Pulmonary hypertension
     Route: 041
     Dates: start: 20250213
  6. KLOR-CON M20 [Concomitant]
     Active Substance: POTASSIUM CHLORIDE
  7. GABAPENTIN [Concomitant]
     Active Substance: GABAPENTIN
  8. CEPHALEXIN [Concomitant]
     Active Substance: CEPHALEXIN
  9. CALCIUM CITRATE [Concomitant]
     Active Substance: CALCIUM CITRATE
  10. BACLOFEN [Concomitant]
     Active Substance: BACLOFEN
  11. SPIRONOLACTONE [Concomitant]
     Active Substance: SPIRONOLACTONE
  12. MINERALS\VITAMINS [Concomitant]
     Active Substance: MINERALS\VITAMINS
  13. MINERALS\VITAMINS [Concomitant]
     Active Substance: MINERALS\VITAMINS
  14. IMODIUM A-D [Concomitant]
     Active Substance: LOPERAMIDE HYDROCHLORIDE
  15. ACETAMINOPHEN\HYDROCODONE [Concomitant]
     Active Substance: ACETAMINOPHEN\HYDROCODONE
  16. TYLENOL [Concomitant]
     Active Substance: ACETAMINOPHEN
  17. ADEMPAS [Concomitant]
     Active Substance: RIOCIGUAT
  18. ADEMPAS [Concomitant]
     Active Substance: RIOCIGUAT

REACTIONS (1)
  - Headache [Unknown]
